FAERS Safety Report 7692168-9 (Version None)
Quarter: 2011Q3

REPORT INFORMATION
  Report Type: 
  Country: None (occurrence: None)
  Receive Date: 20110818
  Receipt Date: 20110809
  Transmission Date: 20111222
  Serious: Yes (Hospitalization, Other)
  Sender: FDA-Public Use
  Company Number: US-ASTRAZENECA-2011SE47782

PATIENT
  Age: 39 Year
  Sex: Female

DRUGS (2)
  1. SYMBICORT [Suspect]
     Route: 055
  2. HORMONE REPLACEMENT THERAPY [Concomitant]

REACTIONS (7)
  - BIPOLAR DISORDER [None]
  - MENOPAUSE [None]
  - DEPRESSION [None]
  - DISABILITY [None]
  - ANXIETY [None]
  - HYSTERECTOMY [None]
  - AGORAPHOBIA [None]
